FAERS Safety Report 20160640 (Version 2)
Quarter: 2023Q1

REPORT INFORMATION
  Report Type: Spontaneous
  Country: US (occurrence: US)
  Receive Date: 20211208
  Receipt Date: 20230301
  Transmission Date: 20230417
  Serious: Yes (Hospitalization, Other)
  Sender: FDA-Public Use
  Company Number: US-MYLANLABS-2021M1090436

PATIENT
  Age: 63 Year
  Sex: Male
  Weight: 140.61 kg

DRUGS (7)
  1. VALSARTAN [Suspect]
     Active Substance: VALSARTAN
     Indication: Hypertension
     Dosage: 320 MILLIGRAM (320 MG)
     Route: 065
     Dates: start: 20160707, end: 20190421
  2. VALSARTAN [Suspect]
     Active Substance: VALSARTAN
     Indication: Hypertension
     Dosage: 320 MILLIGRAM (ZHEJIANG HUAHAI PHARMACEUTICAL)
     Route: 065
     Dates: start: 20161024, end: 20170422
  3. AMLODIPINE [Concomitant]
     Active Substance: AMLODIPINE BESYLATE
     Indication: Hypertension
     Dosage: 10 MILLIGRAM, QD (10 MG ONCE A DAY)
     Route: 065
     Dates: start: 2000
  4. COLACE [Concomitant]
     Active Substance: DOCUSATE SODIUM
     Indication: Constipation
     Dosage: 100 MILLIGRAM, BID (100 MG TWICE A DAY)
     Route: 065
     Dates: end: 2019
  5. ATORVASTATIN [Concomitant]
     Active Substance: ATORVASTATIN
     Indication: Hyperlipidaemia
     Dosage: 40 MILLIGRAM, QD (40 MG ONCE A DAY)
     Route: 065
     Dates: start: 2000
  6. TELMISARTAN [Concomitant]
     Active Substance: TELMISARTAN
     Indication: Hypertension
     Dosage: 80 MILLIGRAM, QD (80 MG ONCE A DAY)
     Route: 065
     Dates: start: 2000, end: 2019
  7. VITAMIN D3 [Concomitant]
     Active Substance: CHOLECALCIFEROL
     Indication: Vitamin D decreased
     Dosage: 5000 INTERNATIONAL UNIT, QD (5,000 UNITS ONCE A DAY)
     Route: 065

REACTIONS (1)
  - Colorectal cancer [Unknown]

NARRATIVE: CASE EVENT DATE: 20191128
